FAERS Safety Report 6239447-X (Version None)
Quarter: 2009Q2

REPORT INFORMATION
  Report Type: 
  Country: None (occurrence: None)
  Receive Date: 20090618
  Receipt Date: 20090618
  Transmission Date: 20091009
  Serious: No
  Sender: FDA-Public Use
  Company Number: None

PATIENT
  Age: 40 Year
  Sex: Male
  Weight: 104.3273 kg

DRUGS (1)
  1. ZICAM INTENSE SINUS RELIEF 7M61 [Suspect]
     Indication: SINUS DISORDER
     Dosage: 2 SPRAY 4 HRS NASAL
     Route: 045
     Dates: start: 20090315, end: 20090320

REACTIONS (1)
  - ANOSMIA [None]
